FAERS Safety Report 20496838 (Version 1)
Quarter: 2022Q1

REPORT INFORMATION
  Report Type: Spontaneous
  Country: FR (occurrence: FR)
  Receive Date: 20220221
  Receipt Date: 20220221
  Transmission Date: 20220424
  Serious: Yes (Hospitalization)
  Sender: FDA-Public Use
  Company Number: None

PATIENT
  Age: 18 Year
  Sex: Female

DRUGS (5)
  1. ALPRAZOLAM [Suspect]
     Active Substance: ALPRAZOLAM
     Indication: Product used for unknown indication
     Dosage: UNK (7.5MG EN UNE PRISE)
     Route: 048
     Dates: start: 20220128, end: 20220128
  2. MIRTAZAPINE [Suspect]
     Active Substance: MIRTAZAPINE
     Indication: Product used for unknown indication
     Dosage: UNK (180MG EN UNE PRISE)
     Route: 048
     Dates: start: 20220128, end: 20220128
  3. HYDROXYZINE HYDROCHLORIDE [Suspect]
     Active Substance: HYDROXYZINE HYDROCHLORIDE
     Indication: Product used for unknown indication
     Dosage: 375 MG EN UNE PRISE
     Route: 048
     Dates: start: 20220128, end: 20220128
  4. SERTRALINE HYDROCHLORIDE [Suspect]
     Active Substance: SERTRALINE HYDROCHLORIDE
     Indication: Product used for unknown indication
     Dosage: 1,4 G EN UNE PRISE
     Route: 048
     Dates: start: 20220128, end: 20220128
  5. CYAMEMAZINE [Suspect]
     Active Substance: CYAMEMAZINE
     Indication: Product used for unknown indication
     Dosage: UNK (375MG EN UNE PRISE)
     Route: 048
     Dates: start: 20220128, end: 20220128

REACTIONS (4)
  - Toxicity to various agents [Recovered/Resolved]
  - Depressed level of consciousness [Recovered/Resolved]
  - Somnolence [Recovered/Resolved]
  - Drug abuse [Recovering/Resolving]

NARRATIVE: CASE EVENT DATE: 20220128
